FAERS Safety Report 4575472-2 (Version None)
Quarter: 2005Q1

REPORT INFORMATION
  Report Type: 
  Country: None (occurrence: None)
  Receive Date: 20050209
  Receipt Date: 20050203
  Transmission Date: 20050727
  Serious: Yes (Hospitalization)
  Sender: FDA-Public Use
  Company Number: 200511035GDDC

PATIENT
  Age: 9 Year
  Sex: Female

DRUGS (2)
  1. MINIRIN [Suspect]
     Indication: DIABETES INSIPIDUS
     Route: 045
     Dates: start: 20050103, end: 20050108
  2. HYDROCORTISONE [Concomitant]
     Indication: HYPOPITUITARISM
     Dates: start: 20050101

REACTIONS (3)
  - CONFUSIONAL STATE [None]
  - HYPONATRAEMIA [None]
  - WATER INTOXICATION [None]
